FAERS Safety Report 8101987-6 (Version None)
Quarter: 2012Q1

REPORT INFORMATION
  Report Type: 
  Country: None (occurrence: None)
  Receive Date: 20120131
  Receipt Date: 20120118
  Transmission Date: 20120608
  Serious: Yes (Other)
  Sender: FDA-Public Use
  Company Number: DE-ELI_LILLY_AND_COMPANY-DE201104005608

PATIENT
  Age: 57 Year
  Sex: Female

DRUGS (9)
  1. ALBUTEROL SULFATE AUTOHALER [Concomitant]
  2. TRIAMTEREN [Concomitant]
  3. SPIRIVA [Concomitant]
  4. CALCIUM [Concomitant]
  5. FORTEO [Suspect]
     Indication: OSTEOPOROSIS
     Dosage: UNK, QD
     Route: 058
     Dates: start: 20110405
  6. OMEPRAZOLE [Concomitant]
  7. CORTISONE ACETATE [Concomitant]
  8. TORSEMIDE [Concomitant]
  9. FORMOTEROL FUMARATE [Concomitant]

REACTIONS (7)
  - NAUSEA [None]
  - MALAISE [None]
  - RESPIRATORY DISTRESS [None]
  - CHEST PAIN [None]
  - WEIGHT DECREASED [None]
  - DIZZINESS [None]
  - MUSCLE SPASMS [None]
